FAERS Safety Report 17017576 (Version 1)
Quarter: 2019Q4

REPORT INFORMATION
  Report Type: Spontaneous
  Country: DE (occurrence: DE)
  Receive Date: 20191111
  Receipt Date: 20191111
  Transmission Date: 20200122
  Serious: Yes (Other)
  Sender: FDA-Public Use
  Company Number: DE-SAMSUNG BIOEPIS-SB-2019-32480

PATIENT
  Age: 65 Year
  Sex: Female
  Weight: 52 kg

DRUGS (6)
  1. BENEPALI [Suspect]
     Active Substance: ETANERCEPT
     Indication: RHEUMATOID ARTHRITIS
     Dosage: 1XWOECHENTLICH
     Route: 058
     Dates: start: 201810, end: 201810
  2. VIGANTOLETTEN [Concomitant]
     Active Substance: CHOLECALCIFEROL
     Indication: VITAMIN D DEFICIENCY
     Dosage: 1X TAEGLICH
     Route: 048
  3. L-THYROXIN [Concomitant]
     Active Substance: LEVOTHYROXINE SODIUM
     Indication: HYPOTHYROIDISM
     Dosage: 1X TAEGLICH
     Route: 048
  4. PROLIA FS [Concomitant]
     Indication: OSTEOPOROSIS
     Dosage: ALLE 6 MONATE
     Route: 065
  5. DESLORATADIN [Concomitant]
     Active Substance: DESLORATADINE
     Indication: ANTIALLERGIC THERAPY
     Dosage: 1X TAEGLICH
     Route: 048
  6. MAGNESIUM VERLA N DRAGEES [Concomitant]
     Indication: MUSCLE SPASMS
     Dosage: 2X1
     Route: 048

REACTIONS (1)
  - Psoriatic arthropathy [Recovering/Resolving]

NARRATIVE: CASE EVENT DATE: 201810
